FAERS Safety Report 6081060-1 (Version None)
Quarter: 2009Q1

REPORT INFORMATION
  Report Type: 
  Country: None (occurrence: None)
  Receive Date: 20090121
  Receipt Date: 20080723
  Transmission Date: 20090719
  Serious: Yes (Hospitalization, Other)
  Sender: FDA-Public Use
  Company Number: US-WYE-H05189708

PATIENT
  Age: 58 Year
  Sex: Female
  Weight: 72.64 kg

DRUGS (7)
  1. PREMPRO [Suspect]
  2. PREMARIN [Suspect]
  3. AMEN [Concomitant]
  4. OGEN [Concomitant]
  5. FEMHRT [Concomitant]
  6. PROVERA [Concomitant]
  7. MEDROXYPROGESTERONE [Concomitant]

REACTIONS (1)
  - BREAST CANCER [None]
